FAERS Safety Report 8875351 (Version 1)
Quarter: 2012Q4

REPORT INFORMATION
  Report Type: 
  Country: JP (occurrence: JP)
  Receive Date: 20121029
  Receipt Date: 20121029
  Transmission Date: 20130627
  Serious: Yes (Other)
  Sender: FDA-Public Use
  Company Number: JP-SANOFI-AVENTIS-2012SA078441

PATIENT
  Age: 60 Year
  Sex: Male

DRUGS (1)
  1. MYSLEE [Suspect]
     Indication: SLEEP LOSS
     Route: 048

REACTIONS (3)
  - Leukaemia [Recovered/Resolved]
  - Coagulation factor VIII level decreased [Recovered/Resolved]
  - Coagulation factor IX level decreased [Recovered/Resolved]
